FAERS Safety Report 9341350 (Version 1)
Quarter: 2013Q2

REPORT INFORMATION
  Report Type: Spontaneous
  Country: US (occurrence: None)
  Receive Date: 20130610
  Receipt Date: 20130610
  Transmission Date: 20140414
  Serious: Yes (Other)
  Sender: FDA-Public Use
  Company Number: None

PATIENT
  Age: 36 Year
  Sex: Female
  Weight: 58.51 kg

DRUGS (1)
  1. LEVOFLOXACIN [Suspect]
     Indication: URINARY TRACT INFECTION
     Dosage: 1X DAILY
     Route: 048
     Dates: start: 20110307, end: 20110310

REACTIONS (7)
  - Tendon disorder [None]
  - Muscle injury [None]
  - Ligament disorder [None]
  - Pain in extremity [None]
  - Arthralgia [None]
  - Arthropathy [None]
  - Ligament sprain [None]
